FAERS Safety Report 25173397 (Version 1)
Quarter: 2025Q2

REPORT INFORMATION
  Report Type: Spontaneous
  Country: US (occurrence: None)
  Receive Date: 20250408
  Receipt Date: 20250408
  Transmission Date: 20250717
  Serious: Yes (Other)
  Sender: FDA-CTU
  Company Number: None

PATIENT
  Sex: Female

DRUGS (11)
  1. POMALYST [Suspect]
     Active Substance: POMALIDOMIDE
     Indication: Plasma cell myeloma
     Route: 048
     Dates: start: 20250116
  2. ACYCLOVIR [Concomitant]
     Active Substance: ACYCLOVIR
  3. ATORVASTATIN [Concomitant]
     Active Substance: ATORVASTATIN
  4. CALCIUM PHOS POWTRIBASIC [Concomitant]
  5. DARZALEX SOL FASPRO [Concomitant]
  6. DEXAMETHASONE [Concomitant]
     Active Substance: DEXAMETHASONE
  7. DULOXETINE CAP 40MG [Concomitant]
  8. ELIQUIS [Concomitant]
     Active Substance: APIXABAN
  9. ACETAMINOPHEN\HYDROCODONE [Concomitant]
     Active Substance: ACETAMINOPHEN\HYDROCODONE
  10. IRON TAB 65MG [Concomitant]
  11. LOMOTIL TAB 2.5MG [Concomitant]

REACTIONS (4)
  - Pain [None]
  - Therapy interrupted [None]
  - Red blood cell count decreased [None]
  - Haemoglobin decreased [None]
